FAERS Safety Report 8541857-2 (Version None)
Quarter: 2012Q3

REPORT INFORMATION
  Report Type: 
  Country: None (occurrence: None)
  Receive Date: 20120726
  Receipt Date: 20110913
  Transmission Date: 20120928
  Serious: No
  Sender: FDA-Public Use
  Company Number: US-ASTRAZENECA-2011SE54770

PATIENT
  Age: 68 Year
  Sex: Female
  Weight: 83.9 kg

DRUGS (5)
  1. CETIRIZINE HCL [Concomitant]
  2. DEXAPRO [Concomitant]
  3. SEROQUEL [Suspect]
     Indication: BIPOLAR DISORDER
     Route: 048
  4. SIMVASTATIN [Concomitant]
  5. BLUESBAR [Concomitant]

REACTIONS (2)
  - INSOMNIA [None]
  - DRUG DOSE OMISSION [None]
